FAERS Safety Report 9239586 (Version 1)
Quarter: 2013Q2

REPORT INFORMATION
  Report Type: Spontaneous
  Country: US (occurrence: US)
  Receive Date: 20130418
  Receipt Date: 20130418
  Transmission Date: 20140414
  Serious: Yes (Hospitalization)
  Sender: FDA-Public Use
  Company Number: US-BANPHARM-20131161

PATIENT
  Age: 15 Year
  Sex: Female
  Weight: 56.7 kg

DRUGS (2)
  1. ALEVE LIQUID GELS 220 MG [Suspect]
     Dosage: 10 DF,
     Route: 048
     Dates: start: 20130402
  2. VYVANSE [Concomitant]

REACTIONS (3)
  - Suicide attempt [Unknown]
  - Abdominal pain upper [Recovered/Resolved]
  - Intentional overdose [Unknown]
